FAERS Safety Report 16538352 (Version 1)
Quarter: 2019Q3

REPORT INFORMATION
  Report Type: Spontaneous
  Country: DE (occurrence: DE)
  Receive Date: 20190708
  Receipt Date: 20190708
  Transmission Date: 20191004
  Serious: Yes (Hospitalization)
  Sender: FDA-Public Use
  Company Number: DE-TEVA-2019-DE-1073472

PATIENT
  Age: 63 Year
  Sex: Male

DRUGS (9)
  1. DEKRISTOL 20000I.E. [Concomitant]
     Dosage: 20000 IE, 2/MONTH
  2. L-THYROXIN [Concomitant]
     Active Substance: LEVOTHYROXINE SODIUM
     Dosage: 125 ?G, 1-0-0-0
  3. FERMED 100MG/5ML [Concomitant]
     Dosage: 100 MG/5ML, 1/MONTH
  4. CALCET [Concomitant]
     Dosage: 500 MG, 2-2-3-0
  5. ASS 100 [Suspect]
     Active Substance: ASPIRIN
     Dosage: 100 MG, 1-0-0-0
  6. CLOPIDOGREL [Suspect]
     Active Substance: CLOPIDOGREL BISULFATE
     Dosage: 75 MG, 1-0-0-0
  7. PREGABALIN. [Concomitant]
     Active Substance: PREGABALIN
     Dosage: 75 MG, 1-0-1-0
  8. CARVEDILOL. [Concomitant]
     Active Substance: CARVEDILOL
     Dosage: 6.25 MG, 1-0-1-0
  9. PANTOPRAZOL [Concomitant]
     Active Substance: PANTOPRAZOLE SODIUM
     Dosage: 40 MG, 1-0-0-0

REACTIONS (3)
  - Abdominal pain [Unknown]
  - Dizziness [Unknown]
  - Haematochezia [Unknown]
